FAERS Safety Report 7485696-2 (Version None)
Quarter: 2011Q2

REPORT INFORMATION
  Report Type: 
  Country: None (occurrence: None)
  Receive Date: 20110516
  Receipt Date: 20110516
  Transmission Date: 20111010
  Serious: No
  Sender: FDA-Public Use
  Company Number: None

PATIENT
  Sex: Female
  Weight: 50.8029 kg

DRUGS (6)
  1. NASACORT [Concomitant]
  2. CHOLESTOFF OTC [Concomitant]
  3. FOSAMAX [Suspect]
     Indication: OSTEOPOROSIS
     Dosage: TABLETS WEEKLY
  4. FOSAMAX [Suspect]
     Indication: OSTEOPOROSIS
     Dosage: TABLETS 10MG DAILY
     Dates: start: 20080101
  5. LORATADINE [Concomitant]
  6. MULTIPLE VITAMIN/MINERAL OTC [Concomitant]

REACTIONS (3)
  - ABDOMINAL PAIN UPPER [None]
  - MYALGIA [None]
  - GASTRIC DISORDER [None]
